FAERS Safety Report 16408385 (Version 2)
Quarter: 2019Q2

REPORT INFORMATION
  Report Type: Spontaneous
  Country: US (occurrence: US)
  Receive Date: 20190610
  Receipt Date: 20190628
  Transmission Date: 20190711
  Serious: No
  Sender: FDA-Public Use
  Company Number: US-AMGEN-USASP2019088648

PATIENT
  Age: 73 Year
  Sex: Male
  Weight: 109 kg

DRUGS (1)
  1. REPATHA [Suspect]
     Active Substance: EVOLOCUMAB
     Indication: BLOOD CHOLESTEROL ABNORMAL
     Dosage: 140 MILLIGRAM
     Route: 065
     Dates: end: 201901

REACTIONS (2)
  - Back pain [Recovered/Resolved]
  - Drug hypersensitivity [Recovered/Resolved]
